FAERS Safety Report 7312088-9 (Version None)
Quarter: 2011Q1

REPORT INFORMATION
  Report Type: 
  Country: None (occurrence: None)
  Receive Date: 20110224
  Receipt Date: 20110125
  Transmission Date: 20110831
  Serious: Yes (Death)
  Sender: FDA-Public Use
  Company Number: US-TYCO HEALTHCARE/MALLINCKRODT-T201100218

PATIENT
  Age: 33 Year
  Sex: Female

DRUGS (9)
  1. ROSIGLITAZONE [Suspect]
     Route: 048
  2. LISINOPRIL [Suspect]
     Route: 048
  3. HYDROCODONE/ACETAMINOPHEN [Suspect]
     Route: 048
  4. ROSUVASTATIN [Suspect]
     Route: 048
  5. PAMELOR [Suspect]
     Route: 048
  6. ARIPIPRAZOLE [Suspect]
     Route: 048
  7. PENNSAID [Suspect]
     Route: 048
  8. OXYCODONE [Suspect]
     Route: 048
  9. TRAZODONE HCL [Suspect]
     Route: 048

REACTIONS (1)
  - CARDIO-RESPIRATORY ARREST [None]
